FAERS Safety Report 5884400-9 (Version None)
Quarter: 2008Q3

REPORT INFORMATION
  Report Type: 
  Country: None (occurrence: None)
  Receive Date: 20080915
  Receipt Date: 20080904
  Transmission Date: 20090109
  Serious: Yes (Death, Other)
  Sender: FDA-Public Use
  Company Number: CL-MERCK-0809CHL00003

PATIENT
  Age: 62 Year
  Sex: Male

DRUGS (6)
  1. INVANZ [Suspect]
     Indication: URINARY TRACT INFECTION
     Route: 065
  2. PHENYTOIN [Concomitant]
     Route: 065
  3. FAMOTIDINE [Concomitant]
     Route: 065
  4. ACENOCOUMAROL [Concomitant]
     Route: 065
  5. DEXAMETHASONE [Concomitant]
     Route: 065
  6. LACTULOSE [Concomitant]
     Route: 065

REACTIONS (2)
  - DEATH [None]
  - GRAND MAL CONVULSION [None]
